FAERS Safety Report 25587865 (Version 1)
Quarter: 2025Q3

REPORT INFORMATION
  Report Type: Spontaneous
  Country: US (occurrence: US)
  Receive Date: 20250721
  Receipt Date: 20250721
  Transmission Date: 20251021
  Serious: Yes (Other)
  Sender: PRINSTON PHARMACEUTICAL
  Company Number: US-PRINSTON PHARMACEUTICAL INC.-2025PRN00230

PATIENT
  Sex: Male
  Weight: 71.668 kg

DRUGS (9)
  1. LOSARTAN POTASSIUM [Suspect]
     Active Substance: LOSARTAN POTASSIUM
     Indication: Hypertension
     Dosage: 100 MG, 1X/DAY
     Route: 048
     Dates: start: 20250615
  2. HYDROCHLOROTHIAZIDE [Concomitant]
     Active Substance: HYDROCHLOROTHIAZIDE
  3. FINASTERIDE [Concomitant]
     Active Substance: FINASTERIDE
  4. ZETIA [Concomitant]
     Active Substance: EZETIMIBE
  5. CRESTOR [Concomitant]
     Active Substance: ROSUVASTATIN CALCIUM
  6. TAMSULOSIN [Concomitant]
     Active Substance: TAMSULOSIN
  7. GEMTESA [Concomitant]
     Active Substance: VIBEGRON
  8. ELIQUIS [Concomitant]
     Active Substance: APIXABAN
  9. PIROXICAM [Concomitant]
     Active Substance: PIROXICAM

REACTIONS (6)
  - Heart rate decreased [Not Recovered/Not Resolved]
  - Kaleidoscope vision [Not Recovered/Not Resolved]
  - Visual impairment [Not Recovered/Not Resolved]
  - Blood pressure diastolic decreased [Not Recovered/Not Resolved]
  - Hypotension [Not Recovered/Not Resolved]
  - Dizziness [Not Recovered/Not Resolved]

NARRATIVE: CASE EVENT DATE: 20250101
